FAERS Safety Report 4571925-1 (Version None)
Quarter: 2005Q1

REPORT INFORMATION
  Report Type: 
  Country: None (occurrence: None)
  Receive Date: 20050202
  Receipt Date: 20050126
  Transmission Date: 20050727
  Serious: Yes (Hospitalization)
  Sender: FDA-Public Use
  Company Number: TPA2005A00105

PATIENT
  Age: 77 Year
  Sex: Male
  Weight: 86.1834 kg

DRUGS (5)
  1. ACTOS [Suspect]
     Indication: DIABETES MELLITUS NON-INSULIN-DEPENDENT
     Dosage: 45 MG, 1 IN 1 D, PER ORAL
     Route: 048
     Dates: start: 20020126
  2. COUMADIN [Concomitant]
  3. GLIPIZIDE [Concomitant]
  4. CRESTOR [Concomitant]
  5. LOPRESSOR [Concomitant]

REACTIONS (3)
  - FALL [None]
  - HIP FRACTURE [None]
  - TRANSIENT ISCHAEMIC ATTACK [None]
